FAERS Safety Report 23786545 (Version 4)
Quarter: 2024Q3

REPORT INFORMATION
  Report Type: Spontaneous
  Country: US (occurrence: US)
  Receive Date: 20240426
  Receipt Date: 20240826
  Transmission Date: 20241017
  Serious: No
  Sender: BRISTOL MYERS SQUIBB
  Company Number: US-BRISTOL-MYERS SQUIBB COMPANY-2024-065563

PATIENT
  Age: 77 Year
  Sex: Female
  Weight: 55.79 kg

DRUGS (2)
  1. REVLIMID [Suspect]
     Active Substance: LENALIDOMIDE
     Indication: Non-Hodgkin^s lymphoma
     Route: 048
     Dates: start: 20240306
  2. REVLIMID [Suspect]
     Active Substance: LENALIDOMIDE
     Route: 048

REACTIONS (6)
  - White blood cell count decreased [Unknown]
  - Myalgia [Unknown]
  - Nasopharyngitis [Unknown]
  - Fatigue [Unknown]
  - Productive cough [Unknown]
  - Viral infection [Recovering/Resolving]
